FAERS Safety Report 19194189 (Version 1)
Quarter: 2021Q2

REPORT INFORMATION
  Report Type: Other
  Country: ES (occurrence: ES)
  Receive Date: 20210429
  Receipt Date: 20210429
  Transmission Date: 20210717
  Serious: Yes (Hospitalization, Other)
  Sender: FDA-Public Use
  Company Number: ES-APPCO PHARMA LLC-2109988

PATIENT
  Age: 21 Year
  Sex: Male

DRUGS (6)
  1. CEFTAZIDIME. [Suspect]
     Active Substance: CEFTAZIDIME
     Route: 042
  2. LINEZOLID. [Concomitant]
     Active Substance: LINEZOLID
     Route: 042
  3. CEFTRIAXONE. [Concomitant]
     Active Substance: CEFTRIAXONE
     Route: 065
  4. CIPROFLOXACIN. [Concomitant]
     Active Substance: CIPROFLOXACIN
     Route: 065
  5. METRONIDAZOLE. [Suspect]
     Active Substance: METRONIDAZOLE
     Indication: ABSCESS
     Route: 042
  6. DEXAMETHASONE. [Concomitant]
     Active Substance: DEXAMETHASONE
     Route: 065

REACTIONS (1)
  - Hepatotoxicity [Recovered/Resolved]
